FAERS Safety Report 10376928 (Version 4)
Quarter: 2017Q4

REPORT INFORMATION
  Report Type: Report from Study
  Country: JP (occurrence: JP)
  Receive Date: 20140811
  Receipt Date: 20171024
  Transmission Date: 20180320
  Serious: Yes (Life-Threatening, Hospitalization, Other)
  Sender: FDA-Public Use
  Company Number: JP-ROCHE-1447904

PATIENT
  Age: 53 Year
  Sex: Female

DRUGS (2)
  1. BEVACIZUMAB. [Suspect]
     Active Substance: BEVACIZUMAB
     Indication: BREAST CANCER METASTATIC
     Route: 041
     Dates: start: 20140410, end: 20140731
  2. PACLITAXEL. [Suspect]
     Active Substance: PACLITAXEL
     Indication: BREAST CANCER METASTATIC
     Dosage: DOSAGE IS UNCERTAIN.
     Route: 041
     Dates: start: 20140410, end: 20140731

REACTIONS (10)
  - Supraventricular extrasystoles [Unknown]
  - Nausea [Recovering/Resolving]
  - Chest pain [Recovering/Resolving]
  - Ventricular fibrillation [Recovered/Resolved]
  - Cardiac arrest [Recovered/Resolved]
  - Oral pain [Recovering/Resolving]
  - Ventricular extrasystoles [Unknown]
  - Malaise [Recovering/Resolving]
  - Haemorrhage [Recovering/Resolving]
  - Neuropathy peripheral [Not Recovered/Not Resolved]

NARRATIVE: CASE EVENT DATE: 20140417
